FAERS Safety Report 9521024 (Version 1)
Quarter: 2013Q3

REPORT INFORMATION
  Report Type: Spontaneous
  Country: US (occurrence: None)
  Receive Date: 20130911
  Receipt Date: 20130911
  Transmission Date: 20140515
  Serious: No
  Sender: FDA-Public Use
  Company Number: AEUSA201300009

PATIENT
  Age: 42 Year
  Sex: Female
  Weight: 99.79 kg

DRUGS (4)
  1. GAMUNEX-C (10 PCT) [Suspect]
     Indication: CHRONIC INFLAMMATORY DEMYELINATING POLYRADICULONEUROPATHY
     Route: 042
     Dates: start: 201110
  2. GAMUNEX-C (10 PCT) [Suspect]
     Indication: SUSAC^S SYNDROME
     Route: 042
     Dates: start: 201110
  3. NORMAL SALINE [Concomitant]
  4. SOLUMEDROL [Concomitant]

REACTIONS (5)
  - Concomitant disease aggravated [None]
  - Headache [None]
  - Musculoskeletal stiffness [None]
  - Neuropathy peripheral [None]
  - Underdose [None]
